FAERS Safety Report 10206219 (Version 1)
Quarter: 2014Q2

REPORT INFORMATION
  Report Type: Spontaneous
  Country: US (occurrence: US)
  Receive Date: 20140530
  Receipt Date: 20140530
  Transmission Date: 20141212
  Serious: Yes (Other)
  Sender: FDA-Public Use
  Company Number: CHPA2014US007169

PATIENT
  Sex: Female

DRUGS (9)
  1. VOLTAREN GEL [Suspect]
     Indication: BACK PAIN
     Route: 061
  2. VOLTAREN GEL [Suspect]
     Indication: MYALGIA
  3. VOLTAREN GEL [Suspect]
     Indication: OFF LABEL USE
  4. DIPROLENE [Suspect]
     Route: 065
  5. BETAMETHASONE DIPROPIONATE [Suspect]
  6. LITHIUM [Concomitant]
     Route: 065
  7. ASPIRIN [Concomitant]
     Route: 065
  8. POTASSIUM [Concomitant]
     Dosage: 2 DF, QD
     Route: 065
  9. SODIUM [Concomitant]

REACTIONS (3)
  - Laryngitis [Not Recovered/Not Resolved]
  - Rash [Not Recovered/Not Resolved]
  - Drug administered at inappropriate site [Unknown]
